FAERS Safety Report 19399609 (Version 1)
Quarter: 2021Q2

REPORT INFORMATION
  Report Type: Spontaneous
  Country: US (occurrence: US)
  Receive Date: 20210609
  Receipt Date: 20210609
  Transmission Date: 20210717
  Serious: Yes (Other)
  Sender: FDA-Public Use
  Company Number: None

PATIENT
  Age: 55 Year
  Sex: Female

DRUGS (1)
  1. RACHNA PALACE EXPERT WHITE SUNCREAM SPF 50 PA+++ [Suspect]
     Active Substance: OCTINOXATE\TITANIUM DIOXIDE\ZINC OXIDE
     Indication: PROPHYLAXIS AGAINST SOLAR RADIATION
     Dosage: ?          OTHER STRENGTH:NONE;?
     Route: 061

REACTIONS (4)
  - Burning sensation [None]
  - Product communication issue [None]
  - Rash [None]
  - Erythema [None]
